FAERS Safety Report 16728994 (Version 1)
Quarter: 2019Q3

REPORT INFORMATION
  Report Type: Spontaneous
  Country: DK (occurrence: DK)
  Receive Date: 20190822
  Receipt Date: 20190822
  Transmission Date: 20191005
  Serious: Yes (Disabling)
  Sender: FDA-Public Use
  Company Number: DK-TEVA-2019-DK-1094695

PATIENT
  Age: 50 Year
  Sex: Male

DRUGS (1)
  1. QUETIAPINE TEVA [Suspect]
     Active Substance: QUETIAPINE
     Indication: TACHYPHRENIA
     Dosage: STRENGTH: 100 MG.
     Route: 048
     Dates: start: 20171123, end: 201712

REACTIONS (3)
  - Priapism [Recovered/Resolved with Sequelae]
  - Erectile dysfunction [Not Recovered/Not Resolved]
  - Penile operation [Recovered/Resolved]

NARRATIVE: CASE EVENT DATE: 201712
